FAERS Safety Report 7551065-X (Version None)
Quarter: 2011Q2

REPORT INFORMATION
  Report Type: 
  Country: None (occurrence: None)
  Receive Date: 20110616
  Receipt Date: 20110607
  Transmission Date: 20111010
  Serious: Yes (Other)
  Sender: FDA-Public Use
  Company Number: GR-BRISTOL-MYERS SQUIBB COMPANY-15807936

PATIENT
  Age: 70 Year
  Sex: Female

DRUGS (7)
  1. PERINDOPRIL ARGININE + AMLODIPINE BESILATE [Concomitant]
     Indication: HYPERTENSION
     Dosage: 1DF=COVERAM TAB (10+10) MG/TAB
  2. XANAX [Concomitant]
     Indication: ANXIETY
     Dosage: TABS
  3. ONGLYZA [Suspect]
     Indication: TYPE 2 DIABETES MELLITUS
     Dosage: DURATION 7-8MONTHS
     Route: 048
  4. SOLOSA [Concomitant]
     Indication: TYPE 2 DIABETES MELLITUS
     Dosage: TABS
  5. GLICLAZIDE [Concomitant]
     Indication: TYPE 2 DIABETES MELLITUS
  6. NEBIVOLOL HCL [Concomitant]
     Dosage: 1DF=1 TABLET LOBINON PLUS FC TAB (5MG+25MG)/TAB,
  7. EZETIMIBE [Concomitant]
     Indication: BLOOD CHOLESTEROL
     Dosage: 1DF=INEGY 10/20 TABS

REACTIONS (2)
  - FACE OEDEMA [None]
  - ALBUMINURIA [None]
